FAERS Safety Report 5317454-9 (Version None)
Quarter: 2007Q2

REPORT INFORMATION
  Report Type: 
  Country: None (occurrence: None)
  Receive Date: 20070507
  Receipt Date: 20070430
  Transmission Date: 20071010
  Serious: Yes (Other)
  Sender: FDA-Public Use
  Company Number: US-JNJFOC-20070500043

PATIENT
  Sex: Female

DRUGS (5)
  1. FLEXERIL [Suspect]
     Dosage: ENTIRE BOTTLE
     Route: 048
  2. FLEXERIL [Suspect]
     Indication: DRUG USE FOR UNKNOWN INDICATION
     Route: 048
  3. EXTRA STRENGTH TYLENOL [Suspect]
     Indication: INTENTIONAL DRUG MISUSE
     Dosage: DOSE UNKNOWN
  4. SEROQUEL [Suspect]
     Indication: DRUG USE FOR UNKNOWN INDICATION
     Dosage: DOSE UNKNOWN
  5. PROZAC [Concomitant]

REACTIONS (2)
  - DRUG EXPOSURE DURING PREGNANCY [None]
  - MULTIPLE DRUG OVERDOSE INTENTIONAL [None]
